FAERS Safety Report 7095863-8 (Version None)
Quarter: 2010Q4

REPORT INFORMATION
  Report Type: 
  Country: None (occurrence: None)
  Receive Date: 20101111
  Receipt Date: 20101029
  Transmission Date: 20110411
  Serious: Yes (Hospitalization)
  Sender: FDA-Public Use
  Company Number: US-JNJFOC-20100903994

PATIENT
  Sex: Female
  Weight: 49 kg

DRUGS (8)
  1. DURAGESIC-100 [Suspect]
     Indication: PAIN
     Route: 062
  2. DURAGESIC-100 [Suspect]
     Route: 062
  3. DURAGESIC-100 [Suspect]
     Indication: OSTEOARTHRITIS
     Route: 062
  4. DURAGESIC-100 [Suspect]
     Route: 062
  5. PERCODAN-DEMI [Suspect]
     Indication: BREAKTHROUGH PAIN
     Route: 048
  6. METOCLOPRAMIDE [Suspect]
     Indication: PROCEDURAL NAUSEA
     Dosage: PUSH
     Route: 042
  7. MORPHINE [Concomitant]
     Route: 065
  8. PERCOCET [Concomitant]
     Indication: PAIN
     Dosage: 5/325G, T OF 4-6 DEGREE
     Route: 065

REACTIONS (3)
  - HOT FLUSH [None]
  - HYPERHIDROSIS [None]
  - TARDIVE DYSKINESIA [None]
